FAERS Safety Report 12828778 (Version 1)
Quarter: 2016Q4

REPORT INFORMATION
  Report Type: Spontaneous
  Country: US (occurrence: US)
  Receive Date: 20161007
  Receipt Date: 20161007
  Transmission Date: 20170207
  Serious: No
  Sender: FDA-Public Use
  Company Number: US-SA-2015SA188472

PATIENT
  Sex: Female

DRUGS (17)
  1. ASPIRIN. [Concomitant]
     Active Substance: ASPIRIN
     Dates: start: 20141208, end: 20150705
  2. FLUOXETINE HYDROCHLORIDE. [Concomitant]
     Active Substance: FLUOXETINE HYDROCHLORIDE
  3. GABAPENTIN. [Concomitant]
     Active Substance: GABAPENTIN
  4. BUTRANS [Concomitant]
     Active Substance: BUPRENORPHINE
  5. KLOR-CON [Concomitant]
     Active Substance: POTASSIUM CHLORIDE
  6. PRISTIQ EXTENDED-RELEASE [Concomitant]
     Active Substance: DESVENLAFAXINE SUCCINATE
  7. BIOTIN [Concomitant]
     Active Substance: BIOTIN
  8. ALEVE [Concomitant]
     Active Substance: NAPROXEN SODIUM
     Dates: start: 20150417, end: 20150507
  9. FETZIMA [Concomitant]
     Active Substance: LEVOMILNACIPRAN HYDROCHLORIDE
  10. TRAMADOL HYDROCHLORIDE. [Concomitant]
     Active Substance: TRAMADOL HYDROCHLORIDE
  11. SEROQUEL [Concomitant]
     Active Substance: QUETIAPINE FUMARATE
  12. KLONOPIN [Concomitant]
     Active Substance: CLONAZEPAM
  13. DEXAMETHASONE. [Concomitant]
     Active Substance: DEXAMETHASONE
  14. MELATONIN [Concomitant]
     Active Substance: MELATONIN
     Dates: start: 20150417, end: 20150507
  15. BACLOFEN. [Concomitant]
     Active Substance: BACLOFEN
  16. AUBAGIO [Suspect]
     Active Substance: TERIFLUNOMIDE
     Indication: MULTIPLE SCLEROSIS
     Route: 048
  17. ABILIFY [Concomitant]
     Active Substance: ARIPIPRAZOLE
     Dates: start: 20150417, end: 20150507

REACTIONS (7)
  - Peripheral swelling [Unknown]
  - Paraesthesia [Unknown]
  - Anaemia [Unknown]
  - Decreased interest [Unknown]
  - Disturbance in attention [Unknown]
  - Alopecia [Unknown]
  - Hypoaesthesia [Unknown]

NARRATIVE: CASE EVENT DATE: 201512
